FAERS Safety Report 23673576 (Version 1)
Quarter: 2024Q1

REPORT INFORMATION
  Report Type: Spontaneous
  Country: FR (occurrence: FR)
  Receive Date: 20240326
  Receipt Date: 20240326
  Transmission Date: 20240410
  Serious: Yes (Hospitalization, Other)
  Sender: FDA-Public Use
  Company Number: FR-B.Braun Medical Inc.-2154848

PATIENT
  Age: 83 Year
  Sex: Female

DRUGS (3)
  1. METRONIDAZOLE [Suspect]
     Active Substance: METRONIDAZOLE
     Indication: Infection
     Route: 042
     Dates: start: 20240217, end: 20240219
  2. LOVENOX [Suspect]
     Active Substance: ENOXAPARIN SODIUM
  3. CEFTRIAXONE [Suspect]
     Active Substance: CEFTRIAXONE\CEFTRIAXONE SODIUM

REACTIONS (2)
  - Condition aggravated [Not Recovered/Not Resolved]
  - Thrombocytopenia [Not Recovered/Not Resolved]
